FAERS Safety Report 9238239 (Version 1)
Quarter: 2013Q2

REPORT INFORMATION
  Report Type: Spontaneous
  Country: US (occurrence: None)
  Receive Date: 20130415
  Receipt Date: 20130415
  Transmission Date: 20140414
  Serious: Yes (Other)
  Sender: FDA-Public Use
  Company Number: 2013DEPUS00526

PATIENT
  Sex: Male

DRUGS (1)
  1. DEPOCYT [Suspect]
     Indication: ACUTE MYELOID LEUKAEMIA
     Dates: start: 20130329

REACTIONS (2)
  - Delirium [None]
  - Off label use [None]
